FAERS Safety Report 9172041 (Version 1)
Quarter: 2013Q1

REPORT INFORMATION
  Report Type: Spontaneous
  Country: US (occurrence: US)
  Receive Date: 20130319
  Receipt Date: 20130319
  Transmission Date: 20140127
  Serious: No
  Sender: FDA-Public Use
  Company Number: US-BAYER-2013-034336

PATIENT
  Age: 77 Year
  Sex: Male
  Weight: 74.83 kg

DRUGS (3)
  1. ALEVE [Suspect]
     Indication: ANALGESIC THERAPY
     Dosage: 2 DF, PRN
     Route: 048
     Dates: start: 2009, end: 201302
  2. ALEVE [Suspect]
     Indication: ANALGESIC THERAPY
  3. MULTIVITAMIN [Concomitant]

REACTIONS (2)
  - Drug ineffective [None]
  - Product quality issue [None]
